FAERS Safety Report 4808699-2 (Version None)
Quarter: 2005Q4

REPORT INFORMATION
  Report Type: 
  Country: None (occurrence: None)
  Receive Date: 20051025
  Receipt Date: 20051017
  Transmission Date: 20060501
  Serious: Yes (Hospitalization)
  Sender: FDA-Public Use
  Company Number: 200513392FR

PATIENT
  Age: 71 Year
  Sex: Male
  Weight: 60 kg

DRUGS (10)
  1. LOVENOX [Suspect]
     Route: 058
     Dates: start: 20050528, end: 20050923
  2. DEPAKENE [Suspect]
     Indication: CONVULSION
     Route: 048
     Dates: start: 20010101, end: 20050930
  3. CORDARONE [Suspect]
     Indication: ATRIAL FIBRILLATION
     Route: 048
     Dates: start: 20050710, end: 20050924
  4. NITRODERM [Suspect]
     Route: 062
     Dates: end: 20050915
  5. SOLU-MEDROL [Suspect]
     Route: 042
     Dates: end: 20050915
  6. NEXIUM [Suspect]
     Route: 048
     Dates: start: 20050530, end: 20050930
  7. ROCEPHIN [Suspect]
     Dates: start: 20050917, end: 20050918
  8. SCOPOLAMINE [Suspect]
     Dates: start: 20050915, end: 20050918
  9. CELOCURINE [Suspect]
     Dates: start: 20050919, end: 20050919
  10. DIPRIVAN [Suspect]
     Dates: start: 20050919, end: 20050919

REACTIONS (1)
  - RENAL FAILURE ACUTE [None]
